FAERS Safety Report 7510639-2 (Version None)
Quarter: 2011Q2

REPORT INFORMATION
  Report Type: 
  Country: None (occurrence: None)
  Receive Date: 20110530
  Receipt Date: 20110526
  Transmission Date: 20111010
  Serious: Yes (Death, Life-Threatening, Hospitalization)
  Sender: FDA-Public Use
  Company Number: PHHY2010US47853

PATIENT
  Sex: Female
  Weight: 129 kg

DRUGS (4)
  1. COUMADIN [Concomitant]
  2. ZESTRIL [Concomitant]
  3. PRINIVIL [Concomitant]
  4. RECLAST [Suspect]
     Indication: OSTEOPOROSIS POSTMENOPAUSAL
     Dosage: 5 MG
     Dates: start: 20100325

REACTIONS (3)
  - HAEMORRHAGE INTRACRANIAL [None]
  - DISORIENTATION [None]
  - SUBDURAL HAEMATOMA [None]
